FAERS Safety Report 15398666 (Version 1)
Quarter: 2018Q3

REPORT INFORMATION
  Report Type: Spontaneous
  Country: US (occurrence: US)
  Receive Date: 20180918
  Receipt Date: 20180918
  Transmission Date: 20181010
  Serious: No
  Sender: FDA-Public Use
  Company Number: US-BRAINTREE LABORATORIES-170632

PATIENT
  Age: 35 Year
  Sex: Female
  Weight: 136.07 kg

DRUGS (1)
  1. SUPREP BOWEL PREP [Suspect]
     Active Substance: MAGNESIUM SULFATE\POTASSIUM SULFATE\SODIUM SULFATE
     Indication: COLONOSCOPY
     Dosage: ~1.5X6OZ.BOTTLE
     Route: 048
     Dates: start: 20171106, end: 20171107

REACTIONS (1)
  - Vomiting [None]

NARRATIVE: CASE EVENT DATE: 20171107
